FAERS Safety Report 18219978 (Version 7)
Quarter: 2020Q4

REPORT INFORMATION
  Report Type: Other
  Country: KR (occurrence: KR)
  Receive Date: 20200902
  Receipt Date: 20201124
  Transmission Date: 20210113
  Serious: Yes (Hospitalization)
  Sender: FDA-Public Use
  Company Number: KR-ROCHE-2600531

PATIENT
  Age: 74 Year
  Sex: Male
  Weight: 64.6 kg

DRUGS (4)
  1. CARBOPLATIN. [Suspect]
     Active Substance: CARBOPLATIN
     Dosage: MOST RECENT DOSE OF CARBOPLATIN ON 13/MAY/2020,02/JUN/2020
     Route: 042
  2. CARBOPLATIN. [Suspect]
     Active Substance: CARBOPLATIN
     Indication: SMALL CELL LUNG CANCER
     Dosage: SUBSEQUENT DOSE OF CARBOPLATIN ON 13/MAY/2020,02/JUN/2020, 23/JUN/2020 AND 14/JUL/2020?(ROUTE AS PER
     Route: 042
  3. ATEZOLIZUMAB. [Suspect]
     Active Substance: ATEZOLIZUMAB
     Indication: SMALL CELL LUNG CANCER
     Dosage: SUBSEQUENT DOSE OF ATEZOLIZUMAB ON 13/MAY/2020,02/JUN/2020, 23/JUN/2020 AND 14/JUL/2020
     Route: 041
  4. ETOPOSIDE. [Suspect]
     Active Substance: ETOPOSIDE
     Indication: SMALL CELL LUNG CANCER
     Dosage: SUBSEQUENT DOSE OF ETOPOSIDE ON 13/MAY/2020, 14/MAY/2020, 15/MAY/2020, 02/JUN/2020, 03/JUN/2020, 04/
     Route: 042

REACTIONS (11)
  - Cholecystitis [Recovered/Resolved]
  - Pelvic pain [Recovering/Resolving]
  - Anaemia [Recovered/Resolved]
  - Constipation [Not Recovered/Not Resolved]
  - Hypotension [Recovered/Resolved]
  - Ileus [Not Recovered/Not Resolved]
  - Immune-mediated enterocolitis [Not Recovered/Not Resolved]
  - Back pain [Recovering/Resolving]
  - Febrile neutropenia [Recovered/Resolved]
  - Decreased appetite [Recovering/Resolving]
  - Cough [Recovered/Resolved]

NARRATIVE: CASE EVENT DATE: 20200407
